FAERS Safety Report 8686577 (Version 3)
Quarter: 2013Q4

REPORT INFORMATION
  Report Type: Spontaneous
  Country: US (occurrence: US)
  Receive Date: 20120726
  Receipt Date: 20131101
  Transmission Date: 20140711
  Serious: No
  Sender: FDA-Public Use
  Company Number: US-009507513-1207USA002771

PATIENT
  Sex: Female

DRUGS (5)
  1. VICTRELIS [Suspect]
     Dosage: 800 MG, TID
     Route: 048
     Dates: start: 201206
  2. PEGASYS [Suspect]
  3. RIBAVIRIN [Suspect]
  4. VALACYCLOVIR HYDROCHLORIDE [Concomitant]
  5. ENJUVIA [Concomitant]

REACTIONS (2)
  - Fatigue [Not Recovered/Not Resolved]
  - Poor quality sleep [Not Recovered/Not Resolved]
